FAERS Safety Report 8347039-1 (Version None)
Quarter: 2012Q2

REPORT INFORMATION
  Report Type: 
  Country: None (occurrence: None)
  Receive Date: 20120509
  Receipt Date: 20120507
  Transmission Date: 20120825
  Serious: Yes (Life-Threatening, Hospitalization)
  Sender: FDA-Public Use
  Company Number: PHHY2009US54640

PATIENT
  Sex: Male

DRUGS (9)
  1. DILAUDID [Concomitant]
  2. FENTANYL [Concomitant]
  3. HYDREA [Concomitant]
  4. EXJADE [Suspect]
     Indication: SICKLE CELL ANAEMIA
     Dosage: 1500 MG, DAILY
     Route: 048
     Dates: start: 20080101
  5. EXJADE [Suspect]
     Indication: IRON OVERLOAD
     Dosage: 1000 MG, DAILY
     Route: 048
  6. FOLIC ACID [Concomitant]
  7. BENADRYL [Concomitant]
  8. ELAVIL [Concomitant]
  9. VITAMIN D [Concomitant]

REACTIONS (3)
  - SICKLE CELL ANAEMIA WITH CRISIS [None]
  - CEREBROVASCULAR ACCIDENT [None]
  - PRODUCT TASTE ABNORMAL [None]
